FAERS Safety Report 21577801 (Version 5)
Quarter: 2023Q1

REPORT INFORMATION
  Report Type: Spontaneous
  Country: US (occurrence: US)
  Receive Date: 20221110
  Receipt Date: 20230104
  Transmission Date: 20230417
  Serious: Yes (Death)
  Sender: FDA-Public Use
  Company Number: US-002147023-NVSC2022US253350

PATIENT
  Sex: Male
  Weight: 106.1 kg

DRUGS (22)
  1. PLUVICTO [Suspect]
     Active Substance: LUTETIUM LU-177 VIPIVOTIDE TETRAXETAN
     Indication: Prostate cancer
     Dosage: 1000 MBQ (PER ML)
     Route: 042
     Dates: start: 20221006, end: 20221006
  2. ZYTIGA [Concomitant]
     Active Substance: ABIRATERONE ACETATE
     Indication: Product used for unknown indication
     Dosage: 1000 MG, QD (TAKE 2 TABLETS BY MOUTH DAILY BEFORE BREAKFAST)
     Route: 048
     Dates: start: 202207
  3. ZYTIGA [Concomitant]
     Active Substance: ABIRATERONE ACETATE
     Dosage: 500 MG, QD (BEFORE BREAKFAST)
     Route: 048
     Dates: start: 20220801
  4. NORVASC [Concomitant]
     Active Substance: AMLODIPINE BESYLATE
     Indication: Product used for unknown indication
     Dosage: 10 MG, QD (TAKE 10 MG BY MOUTH ONE TIME A DAY)
     Route: 048
     Dates: start: 20220602
  5. ASPIRIN [Concomitant]
     Active Substance: ASPIRIN
     Indication: Product used for unknown indication
     Dosage: 81 MG, QD (TAKE 1 TABLET TOTAL BY MOUTH ONE TIME A DAY)
     Route: 048
     Dates: start: 20181023
  6. COREG [Concomitant]
     Active Substance: CARVEDILOL
     Indication: Product used for unknown indication
     Dosage: 1 DOSAGE FORM, BID
     Route: 048
     Dates: start: 20220512
  7. CATAPRES-TTS [Concomitant]
     Active Substance: CLONIDINE
     Indication: Product used for unknown indication
     Dosage: 1 DOSAGE FORM, QW (0.3 MG/24 HR) PLACE 1 PATCH ONTO THE SKIN ONCE A WEEK
     Route: 062
     Dates: start: 20220511
  8. ZETIA [Concomitant]
     Active Substance: EZETIMIBE
     Indication: Product used for unknown indication
     Dosage: 10 MG, QD
     Route: 048
     Dates: start: 20210914
  9. LASIX [Concomitant]
     Active Substance: FUROSEMIDE
     Indication: Swelling
     Dosage: 20 MG, QD  (TAKE ONE TABLET BY MOUTH AILY AS NEEDED)
     Route: 048
     Dates: start: 20220216
  10. LASIX [Concomitant]
     Active Substance: FUROSEMIDE
     Indication: Oedema
     Dosage: 20 MG, QD (TAKE ONE TABLET BY MOUTH DAILY AS NEEDED)
     Route: 065
     Dates: start: 20220516
  11. NORCO [Concomitant]
     Active Substance: ACETAMINOPHEN\HYDROCODONE BITARTRATE
     Indication: Product used for unknown indication
     Dosage: UNK (TAKE 0.5-1 TABLETS BY MOUTH AS NEEDED IN THE MORNING AND 0.5-1 TABLETS AS NEEDED IN THE EVENING
     Route: 048
     Dates: start: 20220521
  12. LUPRON DEPOT [Concomitant]
     Active Substance: LEUPROLIDE ACETATE
     Indication: Product used for unknown indication
     Dosage: UNK (INJECT INTO THE MUSCLE EVERY 3 MONTHS)
     Route: 030
  13. MEGACE [Concomitant]
     Active Substance: MEGESTROL ACETATE
     Indication: Product used for unknown indication
     Dosage: 5 ML, QD (200 MG TOTAL)
     Route: 048
     Dates: start: 20220708
  14. BENICAR [Concomitant]
     Active Substance: OLMESARTAN MEDOXOMIL
     Indication: Product used for unknown indication
     Dosage: 40 MG, QD
     Route: 048
     Dates: start: 20220225
  15. PRALUENT [Concomitant]
     Active Substance: ALIROCUMAB
     Indication: Product used for unknown indication
     Dosage: UNK (INJECT AS DIRECTED EVERY 14 DAYS)
     Route: 058
     Dates: start: 20190730
  16. DELTASONE [Concomitant]
     Active Substance: PREDNISONE
     Indication: Product used for unknown indication
     Dosage: 5 MG, BID (USE ALONG WITH ABIATERONE)
     Route: 048
     Dates: start: 202207
  17. DELTASONE [Concomitant]
     Active Substance: PREDNISONE
     Dosage: 10 MG, QD
     Route: 048
     Dates: start: 20220801
  18. CRESTOR [Concomitant]
     Active Substance: ROSUVASTATIN CALCIUM
     Indication: Product used for unknown indication
     Dosage: 40 MG (TAKE ONE TABLET BY MOUTH NIGHTLY)
     Route: 048
     Dates: start: 20210308
  19. AMBIEN [Concomitant]
     Active Substance: ZOLPIDEM TARTRATE
     Indication: Sleep disorder
     Dosage: 1 DOSAGE FORM (EVERY NIGHT AT BEDTIME AS NEEDED FOR SLEEP)
     Route: 048
     Dates: start: 20220701
  20. FENTANYL [Concomitant]
     Active Substance: FENTANYL
     Indication: Product used for unknown indication
     Dosage: 1 DOSAGE FORM (25 MCG/HR, 72 HR PATCH-PLACE ONE PATCH ONTO THE SKIN EVERY THIRD DAY)
     Route: 062
     Dates: start: 20220801
  21. OXYCODONE HYDROCHLORIDE [Concomitant]
     Active Substance: OXYCODONE HYDROCHLORIDE
     Indication: Product used for unknown indication
     Dosage: 10 MG, Q4H (AS NEEDED)
     Route: 048
     Dates: start: 20220801
  22. MARINOL [Concomitant]
     Active Substance: DRONABINOL
     Indication: Product used for unknown indication
     Dosage: 1 DOSAGE FORM (1 DF IN MORNING AND 1 DF IN EVENING)
     Route: 048

REACTIONS (1)
  - Prostate cancer [Fatal]
